FAERS Safety Report 9996592 (Version 1)
Quarter: 2014Q1

REPORT INFORMATION
  Report Type: Other
  Country: IT (occurrence: IT)
  Receive Date: 20140311
  Receipt Date: 20140311
  Transmission Date: 20141002
  Serious: Yes (Hospitalization)
  Sender: FDA-Public Use
  Company Number: IT-VERTEX PHARMACEUTICALS INC-2014-001213

PATIENT
  Age: 66 Year
  Sex: Female

DRUGS (3)
  1. INCIVO [Suspect]
     Indication: CHRONIC HEPATITIS C
     Route: 048
     Dates: start: 20131104, end: 20140106
  2. PEGASYS [Suspect]
     Indication: CHRONIC HEPATITIS C
     Dosage: 180 ?G, UNK
     Route: 058
     Dates: start: 20131007, end: 20140106
  3. COPEGUS [Suspect]
     Indication: CHRONIC HEPATITIS C
     Dosage: 200 MG, UNK
     Route: 048
     Dates: start: 20131007, end: 20131226

REACTIONS (2)
  - Erythema [Recovering/Resolving]
  - Rash generalised [Recovering/Resolving]
